FAERS Safety Report 4488748-4 (Version None)
Quarter: 2004Q4

REPORT INFORMATION
  Report Type: 
  Country: None (occurrence: None)
  Receive Date: 20041025
  Receipt Date: 20041011
  Transmission Date: 20050328
  Serious: Yes (Other)
  Sender: FDA-Public Use
  Company Number: 2004050571

PATIENT
  Age: 39 Year
  Sex: Female

DRUGS (5)
  1. ZYRTEC [Suspect]
     Indication: ASTHMA
     Dosage: (10 MG, 1 IN 2 D)
     Dates: start: 20020101
  2. DICLOFENAC (DICLOFENAC SODIUM) [Suspect]
     Indication: PAIN
     Dosage: 200 MG (100 MG, 2 D)
     Dates: end: 20040301
  3. ROFECOXIB [Suspect]
     Indication: PAIN
     Dosage: 100 MG (50 MG, 2 IN 1 D)
     Dates: end: 20040301
  4. TRAMADOL HCL [Concomitant]
  5. ALL OTHER THERAPEUTIC PRODUCTS (ALL OTHER THERAPEUTIC PRODUCTS) [Concomitant]

REACTIONS (9)
  - ABDOMINAL PAIN [None]
  - ANAESTHETIC COMPLICATION [None]
  - BORRELIA INFECTION [None]
  - CAESAREAN SECTION [None]
  - DRUG EXPOSURE DURING PREGNANCY [None]
  - HYPERTENSION [None]
  - RESPIRATORY DISORDER [None]
  - UNINTENDED PREGNANCY [None]
  - UTERINE DILATION AND CURETTAGE [None]
